FAERS Safety Report 6785120-9 (Version None)
Quarter: 2010Q2

REPORT INFORMATION
  Report Type: 
  Country: None (occurrence: None)
  Receive Date: 20100622
  Receipt Date: 20100621
  Transmission Date: 20101027
  Serious: Yes (Hospitalization, Other)
  Sender: FDA-Public Use
  Company Number: US-MERCK-0908USA02517

PATIENT
  Age: 76 Year
  Sex: Female
  Weight: 59 kg

DRUGS (4)
  1. FOSAMAX [Suspect]
     Indication: OSTEOPOROSIS
     Route: 048
     Dates: start: 20000411, end: 20090101
  2. FOSAMAX [Suspect]
     Route: 048
     Dates: start: 20030221
  3. SYNTHROID [Concomitant]
     Indication: THYROID DISORDER
     Route: 065
     Dates: start: 19890101
  4. NORVASC [Concomitant]
     Indication: RAYNAUD'S PHENOMENON
     Route: 065
     Dates: start: 19900101

REACTIONS (38)
  - ANGINA PECTORIS [None]
  - ANXIETY [None]
  - BLADDER DISORDER [None]
  - BONE DISORDER [None]
  - CHOKING [None]
  - CORONARY ARTERY DISEASE [None]
  - DEEP VEIN THROMBOSIS [None]
  - DEPRESSION [None]
  - DYSPHAGIA [None]
  - EXCORIATION [None]
  - EXOSTOSIS [None]
  - FIBROMYALGIA [None]
  - FISTULA DISCHARGE [None]
  - FRACTURED SACRUM [None]
  - GASTRIC DISORDER [None]
  - GASTRITIS [None]
  - HAEMOGLOBIN DECREASED [None]
  - HYPERSENSITIVITY [None]
  - HYPERTENSION [None]
  - HYPOAESTHESIA ORAL [None]
  - INTERVERTEBRAL DISC PROTRUSION [None]
  - JAW DISORDER [None]
  - JOINT RANGE OF MOTION DECREASED [None]
  - LUMBAR SPINAL STENOSIS [None]
  - MASTICATION DISORDER [None]
  - MUSCLE STRAIN [None]
  - OEDEMA [None]
  - OESOPHAGEAL SPASM [None]
  - OSTEOARTHRITIS [None]
  - OSTEONECROSIS OF JAW [None]
  - OSTEOPENIA [None]
  - PARAESTHESIA [None]
  - POSTOPERATIVE FEVER [None]
  - SCIATICA [None]
  - SJOGREN'S SYNDROME [None]
  - SPINAL COLUMN INJURY [None]
  - SPINAL COLUMN STENOSIS [None]
  - THROMBOSIS [None]
